FAERS Safety Report 7490511-7 (Version None)
Quarter: 2011Q2

REPORT INFORMATION
  Report Type: 
  Country: None (occurrence: None)
  Receive Date: 20110519
  Receipt Date: 20110518
  Transmission Date: 20111010
  Serious: Yes (Other)
  Sender: FDA-Public Use
  Company Number: US-TEVA-278988USA

PATIENT
  Sex: Female

DRUGS (1)
  1. COPAXONE [Suspect]
     Indication: MULTIPLE SCLEROSIS
     Route: 058

REACTIONS (2)
  - DRUG INEFFECTIVE [None]
  - MULTIPLE SCLEROSIS RELAPSE [None]
